FAERS Safety Report 8854195 (Version 1)
Quarter: 2012Q4

REPORT INFORMATION
  Report Type: Spontaneous
  Country: US (occurrence: None)
  Receive Date: 20121019
  Receipt Date: 20121019
  Transmission Date: 20130627
  Serious: Yes (Hospitalization)
  Sender: FDA-Public Use
  Company Number: None

PATIENT
  Age: 43 Year
  Sex: Female

DRUGS (1)
  1. BACTRIM [Suspect]
     Dates: start: 20101105, end: 20101110

REACTIONS (11)
  - Drug-induced liver injury [None]
  - Alanine aminotransferase increased [None]
  - Abdominal pain [None]
  - Nausea [None]
  - Fatigue [None]
  - Blood bilirubin increased [None]
  - Blood alkaline phosphatase increased [None]
  - Ascites [None]
  - Hepatic steatosis [None]
  - International normalised ratio increased [None]
  - Portal hypertension [None]
